FAERS Safety Report 10637738 (Version 2)
Quarter: 2015Q2

REPORT INFORMATION
  Report Type: Report from Study
  Country: TR (occurrence: TR)
  Receive Date: 20141208
  Receipt Date: 20150422
  Transmission Date: 20150821
  Serious: Yes (Hospitalization)
  Sender: FDA-Public Use
  Company Number: TR-NOVOPROD-430772

PATIENT
  Sex: Male
  Weight: 3 kg

DRUGS (3)
  1. NOVORAPID [Suspect]
     Active Substance: INSULIN ASPART
     Indication: GESTATIONAL DIABETES
     Dosage: 18 U, QD
     Route: 064
     Dates: start: 20140305
  2. NOVORAPID [Suspect]
     Active Substance: INSULIN ASPART
     Dosage: 18 U, QD
     Route: 063
     Dates: start: 20141010
  3. INSULATARD NPH HUMAN [Suspect]
     Active Substance: INSULIN HUMAN
     Indication: GESTATIONAL DIABETES
     Dosage: 6 U, QD
     Route: 064
     Dates: start: 20140305, end: 20141009

REACTIONS (4)
  - Foetal exposure during pregnancy [Recovered/Resolved]
  - Neonatal aspiration [Recovered/Resolved]
  - Neonatal infection [Recovered/Resolved]
  - Immature respiratory system [Recovered/Resolved]

NARRATIVE: CASE EVENT DATE: 20140305
